FAERS Safety Report 5129637-1 (Version None)
Quarter: 2006Q4

REPORT INFORMATION
  Report Type: 
  Country: None (occurrence: None)
  Receive Date: 20061018
  Receipt Date: 20060921
  Transmission Date: 20070319
  Serious: Yes (Hospitalization)
  Sender: FDA-Public Use
  Company Number: FR-BAYER-200610887BFR

PATIENT
  Age: 54 Year
  Sex: Female

DRUGS (3)
  1. SORAFENIB [Suspect]
     Indication: METASTATIC MALIGNANT MELANOMA
     Dosage: TOTAL DAILY DOSE: 800 MG  UNIT DOSE: 400 MG
     Route: 048
     Dates: start: 20060921, end: 20060921
  2. DACARBAZINE [Suspect]
     Indication: METASTATIC MALIGNANT MELANOMA
     Dosage: UNIT DOSE: 1550 MG
     Route: 042
     Dates: start: 20060921, end: 20060921
  3. TEMERIT [Concomitant]
     Indication: HYPERKINETIC HEART SYNDROME
     Dosage: UNIT DOSE: 5 MG
     Route: 048
     Dates: start: 20060615

REACTIONS (3)
  - DISEASE PROGRESSION [None]
  - EPILEPSY [None]
  - METASTASES TO CENTRAL NERVOUS SYSTEM [None]
